FAERS Safety Report 7038657-1 (Version None)
Quarter: 2010Q4

REPORT INFORMATION
  Report Type: 
  Country: None (occurrence: None)
  Receive Date: 20101011
  Receipt Date: 20101006
  Transmission Date: 20110411
  Serious: Yes (Life-Threatening, Hospitalization, Other)
  Sender: FDA-Public Use
  Company Number: JP-PFIZER INC-2010090607

PATIENT
  Age: 63 Year
  Sex: Male
  Weight: 55 kg

DRUGS (22)
  1. ZYVOX [Suspect]
     Indication: CELLULITIS STAPHYLOCOCCAL
     Dosage: 600 MG, 2X/DAY
     Route: 048
     Dates: start: 20100716, end: 20100722
  2. ALDACTONE [Suspect]
     Indication: CARDIAC FAILURE
     Dosage: 25 MG, 1X/DAY
     Route: 048
  3. AMARYL [Suspect]
     Indication: TYPE 2 DIABETES MELLITUS
     Dosage: 0.75 MG, 2X/DAY
     Route: 048
  4. LUPRAC [Suspect]
     Indication: CARDIAC FAILURE
     Dosage: 4 MG, 1X/DAY
     Route: 048
  5. METFORMIN HCL [Concomitant]
     Indication: TYPE 2 DIABETES MELLITUS
     Dosage: 250 MG, 2X/DAY
     Route: 048
  6. JANUVIA [Concomitant]
     Indication: TYPE 2 DIABETES MELLITUS
     Dosage: 50 MG, 1X/DAY
     Route: 048
  7. ITRIZOLE [Concomitant]
     Dosage: 200 MG, 1X/DAY
     Route: 048
  8. PREDONINE [Concomitant]
     Dosage: 10 MG, 1X/DAY
     Route: 048
  9. FERRO-GRADUMET [Concomitant]
     Dosage: 105 MG, 1X/DAY
     Route: 048
  10. BLOPRESS [Concomitant]
     Dosage: 4 MG, 1X/DAY
     Route: 048
  11. ASPIRIN [Concomitant]
     Dosage: 100 MG, 1X/DAY
     Route: 048
  12. ARTIST [Concomitant]
     Dosage: 10 MG, 1X/DAY
     Route: 048
  13. PREDNISOLONE [Concomitant]
     Dosage: 2 MG, 1X/DAY
     Route: 048
  14. FLUVASTATIN [Concomitant]
     Dosage: 20 MG, 1X/DAY
     Route: 048
  15. SENNOSIDE A+B [Concomitant]
     Dosage: 24 MG, 1X/DAY
     Route: 048
  16. ALFAROL [Concomitant]
     Dosage: 0.5 UG, 1X/DAY
     Route: 048
  17. PARIET [Concomitant]
     Dosage: 10 MG, 2X/DAY
     Route: 048
  18. MICONAZOLE NITRATE [Concomitant]
     Dosage: 5 G, 3X/DAY
     Route: 048
  19. KALIMATE [Concomitant]
     Dosage: 5 G, 3X/DAY
     Route: 048
  20. MAGNESIUM OXIDE [Concomitant]
     Dosage: 1 G, 3X/DAY
     Route: 048
  21. MUCOSTA [Concomitant]
     Dosage: 100 MG, 3X/DAY
     Route: 048
  22. CALCIUM LACTATE [Concomitant]
     Dosage: 1 G, 3X/DAY
     Route: 048

REACTIONS (6)
  - DRUG INTERACTION [None]
  - HEPATIC FUNCTION ABNORMAL [None]
  - HYPERKALAEMIA [None]
  - HYPOGLYCAEMIA [None]
  - PLATELET COUNT DECREASED [None]
  - RENAL IMPAIRMENT [None]
